FAERS Safety Report 6509604-3 (Version None)
Quarter: 2009Q4

REPORT INFORMATION
  Report Type: 
  Country: None (occurrence: None)
  Receive Date: 20091221
  Receipt Date: 20091221
  Transmission Date: 20100525
  Serious: Yes (Hospitalization)
  Sender: FDA-Public Use
  Company Number: None

PATIENT
  Sex: Female
  Weight: 72 kg

DRUGS (4)
  1. PACLITAXEL [Suspect]
     Dosage: 247 MG
     Dates: end: 20091019
  2. TOPOTECAN [Suspect]
     Dosage: 3.18 MG
     Dates: end: 20091021
  3. FENTANYL CITRATE [Concomitant]
  4. OXYCODONE [Concomitant]

REACTIONS (4)
  - ABDOMINAL PAIN [None]
  - CONSTIPATION [None]
  - HYPOPHAGIA [None]
  - VOMITING [None]
